FAERS Safety Report 9712912 (Version 2)
Quarter: 2014Q2

REPORT INFORMATION
  Report Type: Report from Study
  Country: CA (occurrence: CA)
  Receive Date: 20131126
  Receipt Date: 20140611
  Transmission Date: 20141212
  Serious: Yes (Other)
  Sender: FDA-Public Use
  Company Number: CA-JNJFOC-20131112401

PATIENT
  Age: 64 Year
  Sex: Female
  Weight: 90 kg

DRUGS (17)
  1. REMICADE [Suspect]
     Indication: CROHN^S DISEASE
     Dosage: TOTAL: 43 INFUSIONS
     Route: 042
  2. REMICADE [Suspect]
     Indication: CROHN^S DISEASE
     Route: 042
     Dates: start: 20140106
  3. LEVEMIR [Concomitant]
     Dosage: 102 UNITS, TWICE DAILY AT BREAKFAST AND DINNER
     Route: 065
  4. NOVORAPID [Concomitant]
     Dosage: 42 UNITS  AT BREAKFAST AND 42 UNITS AT DINNER.
     Route: 065
  5. METFORMIN [Concomitant]
     Dosage: 2 TABLETS TWICE DAILY.
     Route: 065
  6. APO-HYDRO [Concomitant]
     Dosage: HALF TABLET IN A DAY.
     Route: 065
  7. GEN-VERAPAMIL [Concomitant]
     Dosage: 1 TALET EVERY MORNING
     Route: 065
  8. VASOTEC [Concomitant]
     Dosage: TAKE 1 TABLET TWICE DAILY
     Route: 065
  9. LIPITOR [Concomitant]
     Dosage: 1 TABLET ONCE DAILY
     Route: 065
  10. OXYCOCET [Concomitant]
     Dosage: T 24 HOURS, AS POSSIBLE
     Route: 065
  11. VITAMIN C [Concomitant]
     Dosage: 1 TABLET
  12. CENTRUM NOS [Concomitant]
     Dosage: 1 TABLET DAILY
     Route: 065
  13. ASPIRIN [Concomitant]
     Dosage: 1 TABLET DAILY
     Route: 065
  14. OMEGA 3-6-9 [Concomitant]
     Dosage: TAKE 1 TABLET TWICE DAILY
     Route: 065
  15. CALCIUM [Concomitant]
     Dosage: 1 TABLET TWICE DAILY
     Route: 048
  16. MAGNESIUM [Concomitant]
     Dosage: 2 TABLETS TWICE DAILY
     Route: 065
  17. VITAMIN D [Concomitant]
     Dosage: 1 TABLET DAILY
     Route: 048

REACTIONS (1)
  - Atrial fibrillation [Unknown]
